FAERS Safety Report 8727096 (Version 2)
Quarter: 2015Q2

REPORT INFORMATION
  Report Type: Report from Study
  Country: US (occurrence: US)
  Receive Date: 20120816
  Receipt Date: 20150626
  Transmission Date: 20150821
  Serious: Yes (Other)
  Sender: FDA-Public Use
  Company Number: US-ROCHE-1101525

PATIENT
  Age: 48 Year
  Sex: Female

DRUGS (4)
  1. ACTIVASE [Suspect]
     Active Substance: ALTEPLASE
     Indication: ACUTE MYOCARDIAL INFARCTION
     Route: 065
     Dates: start: 19910813
  2. ACTIVASE [Suspect]
     Active Substance: ALTEPLASE
     Route: 065
  3. TENORMIN [Concomitant]
     Active Substance: ATENOLOL
     Route: 048
  4. ECOTRIN [Concomitant]
     Active Substance: ASPIRIN
     Dosage: 1 P.O. Q DAY
     Route: 048

REACTIONS (6)
  - Bradycardia [Unknown]
  - Urine output decreased [Unknown]
  - White blood cell count increased [Unknown]
  - Haematocrit decreased [Unknown]
  - Nausea [Unknown]
  - Blood creatine phosphokinase increased [Unknown]
